FAERS Safety Report 22193514 (Version 1)
Quarter: 2023Q2

REPORT INFORMATION
  Report Type: Spontaneous
  Country: US (occurrence: US)
  Receive Date: 20230410
  Receipt Date: 20230410
  Transmission Date: 20230722
  Serious: No
  Sender: FDA-Public Use
  Company Number: US-BRISTOL-MYERS SQUIBB COMPANY-2023-050309

PATIENT
  Age: 67 Year
  Sex: Male
  Weight: 104.32 kg

DRUGS (1)
  1. POMALYST [Suspect]
     Active Substance: POMALIDOMIDE
     Indication: Plasma cell myeloma
     Dosage: DAILY 21 DYA THEN 7 DAYS OFF
     Route: 048
     Dates: start: 20230207

REACTIONS (1)
  - Product prescribing issue [Unknown]
